FAERS Safety Report 9709027 (Version 1)
Quarter: 2013Q4

REPORT INFORMATION
  Report Type: Spontaneous
  Country: DE (occurrence: DE)
  Receive Date: 20131125
  Receipt Date: 20131125
  Transmission Date: 20140711
  Serious: Yes (Hospitalization)
  Sender: FDA-Public Use
  Company Number: GXKR2013DE003619

PATIENT
  Age: 68 Year
  Sex: Male

DRUGS (8)
  1. PROMETHAZINE [Suspect]
     Route: 048
     Dates: end: 20130603
  2. PROMETHAZINE [Interacting]
     Dosage: 50 MG, UNK
     Route: 048
     Dates: start: 20130604, end: 20130606
  3. TRAMADOL [Interacting]
     Route: 048
     Dates: end: 20130625
  4. PAROXETINE [Interacting]
     Route: 048
     Dates: end: 20130610
  5. PAROXETINE [Interacting]
     Dosage: 10 MG, UNK
     Route: 048
     Dates: start: 20130611, end: 20130614
  6. ASS [Concomitant]
     Route: 048
  7. GABAPENTIN [Concomitant]
     Route: 048
  8. INDOMETACIN [Concomitant]
     Route: 048
     Dates: end: 20130626

REACTIONS (5)
  - Tachycardia [Recovered/Resolved]
  - Hyperhidrosis [Recovered/Resolved]
  - Restlessness [Recovered/Resolved]
  - Tremor [Recovered/Resolved]
  - Disorientation [Recovered/Resolved]
